FAERS Safety Report 8519081 (Version 2)
Quarter: 2013Q4

REPORT INFORMATION
  Report Type: Spontaneous
  Country: US (occurrence: US)
  Receive Date: 20120418
  Receipt Date: 20131227
  Transmission Date: 20140711
  Serious: Yes (Hospitalization, Other)
  Sender: FDA-Public Use
  Company Number: US-BAYER-2012-035479

PATIENT
  Age: 18 Year
  Sex: Female
  Weight: 61.22 kg

DRUGS (6)
  1. YAZ [Suspect]
  2. YASMIN [Suspect]
  3. VICODIN [Concomitant]
  4. IBUPROFEN [Concomitant]
  5. MOTRIN [Concomitant]
  6. ROBINUL [Concomitant]

REACTIONS (3)
  - Cholecystectomy [None]
  - Injury [None]
  - Cholecystitis chronic [None]
